FAERS Safety Report 23560928 (Version 1)
Quarter: 2024Q1

REPORT INFORMATION
  Report Type: Spontaneous
  Country: DE (occurrence: DE)
  Receive Date: 20240223
  Receipt Date: 20240223
  Transmission Date: 20240410
  Serious: Yes (Death)
  Sender: FDA-Public Use
  Company Number: DE-MALLINCKRODT-MNK202401303

PATIENT
  Age: 26 Year
  Sex: Male

DRUGS (2)
  1. UVADEX [Suspect]
     Active Substance: METHOXSALEN
     Indication: Graft versus host disease
     Dosage: UNKNOWN
     Route: 050
  2. HEPARIN [Concomitant]
     Active Substance: HEPARIN SODIUM
     Indication: Anticoagulant therapy
     Dosage: CONCENTRATION: 15.000 (A/C RATIO: 10:1)

REACTIONS (3)
  - Graft versus host disease [Fatal]
  - Disease complication [Fatal]
  - Product use in unapproved indication [Unknown]
